FAERS Safety Report 20710472 (Version 2)
Quarter: 2022Q2

REPORT INFORMATION
  Report Type: Spontaneous
  Country: DE (occurrence: DE)
  Receive Date: 20220414
  Receipt Date: 20220516
  Transmission Date: 20220721
  Serious: Yes (Other)
  Sender: FDA-Public Use
  Company Number: DE-PFIZER INC-202101708205

PATIENT
  Sex: Female

DRUGS (4)
  1. OCREVUS [Suspect]
     Active Substance: OCRELIZUMAB
     Indication: Relapsing-remitting multiple sclerosis
     Route: 042
     Dates: start: 20191001
  2. COMIRNATY [Suspect]
     Active Substance: TOZINAMERAN
     Indication: COVID-19 immunisation
     Dosage: DOSE 4 (BOOSTER), SINGLE
     Route: 065
     Dates: start: 20211005, end: 20211005
  3. IBUPROFEN [Concomitant]
     Active Substance: IBUPROFEN
     Dosage: 600 MG, AS NEEDED
  4. VITAMIN D [Concomitant]
     Active Substance: VITAMIN D NOS
     Dosage: 20000 IU, WEEKLY

REACTIONS (8)
  - Lens disorder [Not Recovered/Not Resolved]
  - Corneal disorder [Not Recovered/Not Resolved]
  - Visual impairment [Not Recovered/Not Resolved]
  - Skin laceration [Recovered/Resolved]
  - Peripheral swelling [Recovered/Resolved]
  - Solar lentigo [Recovered/Resolved]
  - Malignant melanoma [Not Recovered/Not Resolved]
  - Skin hypertrophy [Recovered/Resolved]

NARRATIVE: CASE EVENT DATE: 20211101
